FAERS Safety Report 25599963 (Version 1)
Quarter: 2025Q3

REPORT INFORMATION
  Report Type: Spontaneous
  Country: CN (occurrence: CN)
  Receive Date: 20250724
  Receipt Date: 20250724
  Transmission Date: 20251020
  Serious: Yes (Other)
  Sender: ALKEM
  Company Number: CN-ALKEM LABORATORIES LIMITED-CN-ALKEM-2024-22360

PATIENT
  Age: 85 Year
  Sex: Female

DRUGS (1)
  1. ITRACONAZOLE [Suspect]
     Active Substance: ITRACONAZOLE
     Indication: Cutaneous sporotrichosis
     Route: 065

REACTIONS (3)
  - Disease recurrence [Recovered/Resolved]
  - Cutaneous sporotrichosis [Recovered/Resolved]
  - Treatment noncompliance [Unknown]
